FAERS Safety Report 18798812 (Version 1)
Quarter: 2021Q1

REPORT INFORMATION
  Report Type: Spontaneous
  Country: US (occurrence: US)
  Receive Date: 20210127
  Receipt Date: 20210127
  Transmission Date: 20210419
  Serious: No
  Sender: FDA-Public Use
  Company Number: None

PATIENT
  Age: 86 Year
  Sex: Female
  Weight: 78.93 kg

DRUGS (2)
  1. ENBREL [Suspect]
     Active Substance: ETANERCEPT
     Indication: RHEUMATOID ARTHRITIS
     Dosage: INJECT 50MG SUBCUTANEOUSLY EVERY 10 DAYS AS DIRECTED?
     Route: 058
  2. ENBREL [Suspect]
     Active Substance: ETANERCEPT
     Indication: RHEUMATOID FACTOR NEGATIVE
     Dosage: INJECT 50MG SUBCUTANEOUSLY EVERY 10 DAYS AS DIRECTED?
     Route: 058

REACTIONS (2)
  - Therapy interrupted [None]
  - COVID-19 [None]
